FAERS Safety Report 8079717-6 (Version None)
Quarter: 2012Q1

REPORT INFORMATION
  Report Type: 
  Country: None (occurrence: None)
  Receive Date: 20120128
  Receipt Date: 20110810
  Transmission Date: 20120608
  Serious: No
  Sender: FDA-Public Use
  Company Number: US-ABBOTT-11P-163-0845302-00

PATIENT
  Age: 61 Year
  Sex: Female

DRUGS (9)
  1. HUMIRA [Suspect]
     Indication: PSORIASIS
     Dates: start: 20110714
  2. BACLOFEN [Concomitant]
     Indication: PAIN
  3. SIMVASTATIN [Concomitant]
     Indication: BLOOD CHOLESTEROL INCREASED
  4. ATENOLOL [Concomitant]
     Indication: HYPERTENSION
  5. CHLORDIAZEPOXIDE [Concomitant]
     Indication: ABDOMINAL PAIN UPPER
  6. OMEPRAZOLE [Concomitant]
     Indication: GASTROOESOPHAGEAL REFLUX DISEASE
  7. GABAPENTIN [Concomitant]
     Indication: PAIN IN EXTREMITY
  8. ISOSORBIDE-ER [Concomitant]
     Indication: CHEST PAIN
  9. NITROLINGUAL [Concomitant]
     Indication: CHEST PAIN

REACTIONS (1)
  - FATIGUE [None]
